FAERS Safety Report 9387221 (Version 1)
Quarter: 2013Q3

REPORT INFORMATION
  Report Type: Spontaneous
  Country: GB (occurrence: GB)
  Receive Date: 20130708
  Receipt Date: 20130708
  Transmission Date: 20140515
  Serious: Yes (Hospitalization)
  Sender: FDA-Public Use
  Company Number: GB-JNJFOC-20130619196

PATIENT
  Age: 16 Year
  Sex: Male
  Weight: 48.7 kg

DRUGS (35)
  1. DOXORUBICIN HYDROCHLORIDE [Suspect]
     Indication: SARCOMA
     Dosage: ON DAY 1 AND 2
     Route: 042
     Dates: start: 20111125
  2. DOXORUBICIN HYDROCHLORIDE [Suspect]
     Indication: SARCOMA
     Route: 042
     Dates: start: 20111104
  3. DOXORUBICIN HYDROCHLORIDE [Suspect]
     Indication: SARCOMA
     Route: 042
     Dates: start: 20110924
  4. BEVACIZUMAB [Suspect]
     Indication: SARCOMA
     Route: 042
     Dates: start: 20110924
  5. BEVACIZUMAB [Suspect]
     Indication: SARCOMA
     Route: 042
     Dates: start: 20111104
  6. BEVACIZUMAB [Suspect]
     Indication: SARCOMA
     Route: 042
     Dates: start: 20111125
  7. IFOSFAMIDE [Suspect]
     Indication: SARCOMA
     Route: 042
     Dates: start: 20110925
  8. IFOSFAMIDE [Suspect]
     Indication: SARCOMA
     Route: 042
     Dates: start: 20111104
  9. IFOSFAMIDE [Suspect]
     Indication: SARCOMA
     Dosage: ON DAY 1 AND DAY 2
     Route: 042
     Dates: start: 20111125
  10. LYOVAC COSMEGEN [Suspect]
     Indication: SARCOMA
     Route: 040
     Dates: start: 20110924
  11. LYOVAC COSMEGEN [Suspect]
     Indication: SARCOMA
     Route: 040
     Dates: start: 20111104
  12. LYOVAC COSMEGEN [Suspect]
     Indication: SARCOMA
     Route: 040
     Dates: start: 20111125
  13. MESNA [Suspect]
     Indication: SARCOMA
     Route: 065
     Dates: start: 20111104
  14. VINCRISTINE [Suspect]
     Indication: SARCOMA
     Route: 042
     Dates: start: 20110924
  15. VINCRISTINE [Suspect]
     Indication: SARCOMA
     Route: 042
     Dates: start: 20111104
  16. VINCRISTINE [Suspect]
     Indication: SARCOMA
     Route: 042
     Dates: start: 20111125
  17. MST CONTINUS [Concomitant]
     Indication: PRODUCT USED FOR UNKNOWN INDICATION
     Route: 065
     Dates: start: 20110921
  18. MST CONTINUS [Concomitant]
     Indication: PRODUCT USED FOR UNKNOWN INDICATION
     Route: 065
     Dates: start: 20110916
  19. CHLORPHENIRAMINE [Concomitant]
     Indication: PRODUCT USED FOR UNKNOWN INDICATION
     Route: 065
     Dates: start: 20111121, end: 20111122
  20. CO-TRIMOXAZOLE [Concomitant]
     Indication: PRODUCT USED FOR UNKNOWN INDICATION
     Route: 065
     Dates: start: 20110924
  21. DOCUSATE SODIUM [Concomitant]
     Indication: PRODUCT USED FOR UNKNOWN INDICATION
     Route: 065
     Dates: start: 2011
  22. DOCUSATE SODIUM [Concomitant]
     Indication: PRODUCT USED FOR UNKNOWN INDICATION
     Route: 065
     Dates: start: 20111007
  23. HYOSCINE [Concomitant]
     Indication: PRODUCT USED FOR UNKNOWN INDICATION
     Route: 065
     Dates: start: 20111104
  24. HYOSCINE [Concomitant]
     Indication: PRODUCT USED FOR UNKNOWN INDICATION
     Route: 065
     Dates: start: 20110925
  25. MELATONIN [Concomitant]
     Indication: PRODUCT USED FOR UNKNOWN INDICATION
     Route: 065
     Dates: start: 20110916
  26. METOCLOPRAMIDE [Concomitant]
     Indication: PRODUCT USED FOR UNKNOWN INDICATION
     Route: 065
     Dates: start: 20110924
  27. METOCLOPRAMIDE [Concomitant]
     Indication: PRODUCT USED FOR UNKNOWN INDICATION
     Route: 065
     Dates: start: 20111120, end: 20111128
  28. NUTRITIONAL SUPPLEMENT [Concomitant]
     Indication: PRODUCT USED FOR UNKNOWN INDICATION
     Route: 065
     Dates: start: 2011
  29. OMEPRAZOLE [Concomitant]
     Indication: PRODUCT USED FOR UNKNOWN INDICATION
     Route: 065
     Dates: start: 20111105
  30. ONDANSETRON [Concomitant]
     Indication: PRODUCT USED FOR UNKNOWN INDICATION
     Route: 065
     Dates: start: 20111124, end: 20111128
  31. ONDANSETRON [Concomitant]
     Indication: PRODUCT USED FOR UNKNOWN INDICATION
     Route: 065
     Dates: start: 20111128
  32. ONDANSETRON [Concomitant]
     Indication: PRODUCT USED FOR UNKNOWN INDICATION
     Route: 065
     Dates: start: 20111104
  33. PARACETAMOL [Concomitant]
     Indication: PRODUCT USED FOR UNKNOWN INDICATION
     Route: 065
     Dates: start: 20111120, end: 20111126
  34. PARACETAMOL [Concomitant]
     Indication: PRODUCT USED FOR UNKNOWN INDICATION
     Route: 065
     Dates: start: 20111007
  35. POLYETHYLENE GLYCOL [Concomitant]
     Route: 065

REACTIONS (6)
  - Febrile neutropenia [Recovered/Resolved]
  - Epistaxis [Recovered/Resolved]
  - Ingrowing nail [Recovered/Resolved]
  - Body temperature increased [Unknown]
  - Constipation [Unknown]
  - Off label use [Unknown]
